FAERS Safety Report 18970823 (Version 1)
Quarter: 2021Q1

REPORT INFORMATION
  Report Type: Spontaneous
  Country: FR (occurrence: FR)
  Receive Date: 20210305
  Receipt Date: 20210305
  Transmission Date: 20210420
  Serious: Yes (Death)
  Sender: FDA-Public Use
  Company Number: FR-ETHYPHARM-2021000249

PATIENT
  Age: 28 Year
  Sex: Male

DRUGS (2)
  1. NORDIAZEPAM [Suspect]
     Active Substance: NORDAZEPAM
     Indication: PRODUCT USED FOR UNKNOWN INDICATION
     Dates: end: 2020
  2. BUPRENORPHINE. [Suspect]
     Active Substance: BUPRENORPHINE
     Indication: DRUG ABUSE
     Dates: start: 2020, end: 2020

REACTIONS (2)
  - Death [Fatal]
  - Drug abuse [Unknown]

NARRATIVE: CASE EVENT DATE: 2020
